FAERS Safety Report 24436085 (Version 1)
Quarter: 2024Q4

REPORT INFORMATION
  Report Type: Spontaneous
  Country: BE (occurrence: BE)
  Receive Date: 20241015
  Receipt Date: 20241015
  Transmission Date: 20250114
  Serious: Yes (Other)
  Sender: CHEPLAPHARM
  Company Number: BE-CHEPLA-2024013041

PATIENT
  Age: 57 Year

DRUGS (9)
  1. GANCICLOVIR [Suspect]
     Active Substance: GANCICLOVIR
     Indication: Antiviral prophylaxis
     Dosage: AS A TREATMENT
  2. VALGANCICLOVIR [Suspect]
     Active Substance: VALGANCICLOVIR
     Indication: Antiviral prophylaxis
  3. BASILIXIMAB [Suspect]
     Active Substance: BASILIXIMAB
     Dosage: INDUCTION THER-APY (ANTI-CD25) WAS ADMINISTERED ON DAY0.
  4. BASILIXIMAB [Suspect]
     Active Substance: BASILIXIMAB
     Dosage: INDUCTION THER-APY (ANTI-CD25) WAS ADMINISTERED ON  DAY 0AFTER TRANSPLANTATION AND 4 D LATER.
  5. METHYLPREDNISOLONE [Suspect]
     Active Substance: METHYLPREDNISOLONE
     Indication: Immunosuppression
     Dosage: DAILY DOSE: 4 MILLIGRAM
  6. METHYLPREDNISOLONE [Suspect]
     Active Substance: METHYLPREDNISOLONE
     Indication: Immunosuppression
  7. TACROLIMUS [Suspect]
     Active Substance: TACROLIMUS
     Indication: Immunosuppression
  8. MYCOPHENOLATE MOFETIL [Suspect]
     Active Substance: MYCOPHENOLATE MOFETIL
     Indication: Immunosuppression
     Dosage: FOR 50 DAYS
  9. MYCOPHENOLATE MOFETIL [Suspect]
     Active Substance: MYCOPHENOLATE MOFETIL
     Indication: Immunosuppression
     Dosage: AFTER 50 DAYS

REACTIONS (6)
  - Pancytopenia [Unknown]
  - Hepatitis [Unknown]
  - Pneumonitis [Unknown]
  - Aspergillus infection [Unknown]
  - Cytomegalovirus infection [Unknown]
  - Influenza [Unknown]
